FAERS Safety Report 7991085-4 (Version None)
Quarter: 2011Q4

REPORT INFORMATION
  Report Type: 
  Country: None (occurrence: None)
  Receive Date: 20111219
  Receipt Date: 20111213
  Transmission Date: 20120403
  Serious: Yes (Other)
  Sender: FDA-Public Use
  Company Number: US-ROCHE-794565

PATIENT
  Sex: Female
  Weight: 63.56 kg

DRUGS (2)
  1. ACCUTANE [Suspect]
     Indication: ACNE
     Route: 065
     Dates: start: 19980601, end: 19981201
  2. ACCUTANE [Suspect]

REACTIONS (8)
  - PERIRECTAL ABSCESS [None]
  - HAEMORRHOIDS [None]
  - DEPRESSION [None]
  - ANAL FISTULA [None]
  - INTESTINAL OBSTRUCTION [None]
  - CROHN'S DISEASE [None]
  - COLITIS ULCERATIVE [None]
  - INTESTINAL HAEMORRHAGE [None]
